FAERS Safety Report 4332140-X (Version None)
Quarter: 2004Q1

REPORT INFORMATION
  Report Type: 
  Country: None (occurrence: None)
  Receive Date: 20040329
  Receipt Date: 20040317
  Transmission Date: 20041129
  Serious: Yes (Death)
  Sender: FDA-Public Use
  Company Number: 163-20785-04020476

PATIENT
  Age: 17 Year
  Sex: Female

DRUGS (1)
  1. THALOMID [Suspect]
     Indication: BRAIN NEOPLASM MALIGNANT
     Dosage: 300 MG DAILY ORAL
     Route: 048
     Dates: start: 20031008, end: 20040127

REACTIONS (3)
  - BRAIN NEOPLASM MALIGNANT [None]
  - MALIGNANT NEOPLASM PROGRESSION [None]
  - METASTASES TO LUNG [None]
